FAERS Safety Report 7275841-6 (Version None)
Quarter: 2011Q1

REPORT INFORMATION
  Report Type: 
  Country: None (occurrence: None)
  Receive Date: 20110204
  Receipt Date: 20110126
  Transmission Date: 20110831
  Serious: No
  Sender: FDA-Public Use
  Company Number: US-JNJFOC-20110200499

PATIENT
  Sex: Male

DRUGS (7)
  1. FENTANYL TRANSDERMAL SYSTEM [Suspect]
     Indication: MYOFASCIAL PAIN SYNDROME
     Route: 062
  2. ULTRAM [Concomitant]
     Indication: BREAKTHROUGH PAIN
     Dosage: UPTO 2 EVERY 4 HOURS AS NEEDED
     Route: 048
  3. LIPITOR [Concomitant]
     Indication: BLOOD CHOLESTEROL INCREASED
     Route: 048
  4. FENTANYL-100 [Suspect]
     Indication: SYSTEMIC LUPUS ERYTHEMATOSUS
     Route: 062
  5. FENTANYL TRANSDERMAL SYSTEM [Suspect]
     Indication: SYSTEMIC LUPUS ERYTHEMATOSUS
     Route: 062
  6. XANAX [Concomitant]
     Indication: ANXIETY
     Route: 048
  7. FENTANYL-100 [Suspect]
     Indication: MYOFASCIAL PAIN SYNDROME
     Route: 062

REACTIONS (6)
  - WEIGHT DECREASED [None]
  - BLOOD CHOLESTEROL INCREASED [None]
  - APPLICATION SITE PAIN [None]
  - APPLICATION SITE PRURITUS [None]
  - AGEUSIA [None]
  - WRONG TECHNIQUE IN DRUG USAGE PROCESS [None]
